FAERS Safety Report 23776243 (Version 1)
Quarter: 2024Q2

REPORT INFORMATION
  Report Type: Spontaneous
  Country: JP (occurrence: JP)
  Receive Date: 20240424
  Receipt Date: 20240424
  Transmission Date: 20240716
  Serious: Yes (Hospitalization)
  Sender: FDA-Public Use
  Company Number: JP-ELI_LILLY_AND_COMPANY-JP202208006980

PATIENT
  Age: 26 Year
  Sex: Male

DRUGS (13)
  1. OLANZAPINE [Suspect]
     Active Substance: OLANZAPINE
     Indication: Depression
     Dosage: DAILY DOSE: 7.5 MILLIGRAM
     Route: 048
  2. OLANZAPINE [Suspect]
     Active Substance: OLANZAPINE
     Indication: Dissociative disorder
     Dosage: DAILY DOSE: 7.5 MILLIGRAM
     Route: 048
  3. MIRTAZAPINE [Suspect]
     Active Substance: MIRTAZAPINE
     Indication: Depression
     Dosage: DAILY DOSE: 30 MILLIGRAM
     Route: 048
  4. MIRTAZAPINE [Suspect]
     Active Substance: MIRTAZAPINE
     Indication: Dissociative disorder
     Dosage: DAILY DOSE: 30 MILLIGRAM
     Route: 048
  5. ZOTEPINE [Suspect]
     Active Substance: ZOTEPINE
     Indication: Depression
     Dosage: DAILY DOSE: 125 MILLIGRAM
     Route: 048
  6. ZOTEPINE [Suspect]
     Active Substance: ZOTEPINE
     Indication: Dissociative disorder
     Dosage: DAILY DOSE: 125 MILLIGRAM
     Route: 048
  7. DIAZEPAM [Suspect]
     Active Substance: DIAZEPAM
     Indication: Dissociative disorder
     Dosage: DAILY DOSE: 15 MILLIGRAM
     Route: 048
  8. DIAZEPAM [Suspect]
     Active Substance: DIAZEPAM
     Indication: Depression
     Dosage: DAILY DOSE: 15 MILLIGRAM
     Route: 048
  9. CHLORPROMAZINE [Suspect]
     Active Substance: CHLORPROMAZINE
     Indication: Dissociative disorder
     Dosage: DAILY DOSE: 25 MILLIGRAM
     Route: 048
  10. CHLORPROMAZINE [Suspect]
     Active Substance: CHLORPROMAZINE
     Indication: Depression
     Dosage: DAILY DOSE: 25 MILLIGRAM
     Route: 048
  11. DISULFIRAM [Concomitant]
     Active Substance: DISULFIRAM
     Dosage: DAILY DOSE: 100 MILLIGRAM
     Route: 048
  12. EPERISONE HYDROCHLORIDE [Concomitant]
     Active Substance: EPERISONE HYDROCHLORIDE
     Dosage: DAILY DOSE: 100 MILLIGRAM
     Route: 048
  13. FLUNITRAZEPAM [Concomitant]
     Active Substance: FLUNITRAZEPAM
     Dosage: DAILY DOSE: 1 MILLIGRAM
     Route: 048

REACTIONS (2)
  - Thermal burn [Recovering/Resolving]
  - Neuroleptic malignant syndrome [Recovering/Resolving]
